FAERS Safety Report 6907008-2 (Version None)
Quarter: 2010Q3

REPORT INFORMATION
  Report Type: 
  Country: None (occurrence: None)
  Receive Date: 20100804
  Receipt Date: 20080221
  Transmission Date: 20110219
  Serious: No
  Sender: FDA-Public Use
  Company Number: US-PFIZER INC-2008019589

PATIENT
  Sex: Male
  Weight: 86.18 kg

DRUGS (2)
  1. NARDIL [Suspect]
     Indication: SOCIAL PHOBIA
     Route: 048
  2. IBUPROFEN (ADVIL) [Concomitant]

REACTIONS (6)
  - DIZZINESS [None]
  - DRY MOUTH [None]
  - INSOMNIA [None]
  - MUSCLE TWITCHING [None]
  - PHOTOPHOBIA [None]
  - TREMOR [None]
